FAERS Safety Report 13514003 (Version 2)
Quarter: 2017Q2

REPORT INFORMATION
  Report Type: Spontaneous
  Country: US (occurrence: US)
  Receive Date: 20170504
  Receipt Date: 20170509
  Transmission Date: 20170830
  Serious: No
  Sender: FDA-Public Use
  Company Number: US-PFIZER INC-2017190808

PATIENT
  Age: 59 Year
  Sex: Female

DRUGS (2)
  1. XELJANZ XR [Suspect]
     Active Substance: TOFACITINIB CITRATE
     Indication: RHEUMATOID ARTHRITIS
     Dosage: 11 MG, UNK
  2. XELJANZ XR [Suspect]
     Active Substance: TOFACITINIB CITRATE
     Dosage: 11 MG, ALTERNATE DAY (EVERY OTHER DAY)

REACTIONS (10)
  - Eye pain [Unknown]
  - Intentional product misuse [Unknown]
  - Sinusitis [Unknown]
  - Rash [Unknown]
  - Skin reaction [Unknown]
  - Joint range of motion decreased [Unknown]
  - Thirst [Unknown]
  - Oral herpes [Unknown]
  - Arthralgia [Unknown]
  - Polyuria [Unknown]
